FAERS Safety Report 16940895 (Version 9)
Quarter: 2022Q2

REPORT INFORMATION
  Report Type: Spontaneous
  Country: PL (occurrence: PL)
  Receive Date: 20191021
  Receipt Date: 20220412
  Transmission Date: 20220721
  Serious: Yes (Hospitalization, Other)
  Sender: FDA-Public Use
  Company Number: PL-MYLANLABS-2019M1097839

PATIENT
  Age: 80 Year
  Sex: Female

DRUGS (20)
  1. VALSARTAN [Suspect]
     Active Substance: VALSARTAN
     Indication: Pulmonary hypertension
     Dosage: 80 MILLIGRAM, QD
     Route: 065
  2. METOPROLOL [Suspect]
     Active Substance: METOPROLOL
     Indication: Pulmonary hypertension
     Dosage: 50 MILLIGRAM, QD
     Route: 065
  3. SILDENAFIL [Suspect]
     Active Substance: SILDENAFIL
     Indication: Pulmonary hypertension
     Dosage: (25 MILLIGRAM, TID)
     Route: 065
     Dates: end: 201807
  4. SILDENAFIL [Suspect]
     Active Substance: SILDENAFIL
     Dosage: 225 MILLIGRAM, QD (75 MG, TID)
     Route: 065
  5. SILDENAFIL [Suspect]
     Active Substance: SILDENAFIL
     Dosage: 25 MG, TID
     Route: 065
     Dates: start: 201705, end: 201807
  6. SILDENAFIL [Suspect]
     Active Substance: SILDENAFIL
     Dosage: 50 MILLIGRAM, QD
     Route: 065
  7. ASPIRIN [Suspect]
     Active Substance: ASPIRIN
     Indication: Product used for unknown indication
     Dosage: UNK
     Dates: start: 201801
  8. SPIRONOLACTONE [Suspect]
     Active Substance: SPIRONOLACTONE
     Indication: Pulmonary hypertension
     Dosage: 25 MILLIGRAM, QD
  9. SPIRONOLACTONE [Suspect]
     Active Substance: SPIRONOLACTONE
     Indication: Diuretic therapy
     Dosage: 50 MILLIGRAM, QD
     Route: 065
     Dates: start: 201807
  10. ACENOCOUMAROL [Suspect]
     Active Substance: ACENOCOUMAROL
     Indication: Pulmonary hypertension
     Dosage: UNK
  11. RIOCIGUAT [Suspect]
     Active Substance: RIOCIGUAT
     Indication: Pulmonary hypertension
     Dosage: UNK
     Dates: start: 201807
  12. RIOCIGUAT [Suspect]
     Active Substance: RIOCIGUAT
     Dosage: INCREASED TO THE TARGET DOSE OF 2.5 MG TID
     Dates: start: 201807
  13. RIOCIGUAT [Suspect]
     Active Substance: RIOCIGUAT
     Dosage: 2.5 MILLIGRAM
     Dates: start: 201807
  14. RIOCIGUAT [Suspect]
     Active Substance: RIOCIGUAT
     Dosage: 20 MILLIGRAM, QD
     Route: 065
  15. RIOCIGUAT [Suspect]
     Active Substance: RIOCIGUAT
     Dosage: 7.5 MG, QD (2.5 MILLIGRAM, TID)
     Route: 065
  16. TORSEMIDE [Suspect]
     Active Substance: TORSEMIDE
     Indication: Diuretic therapy
     Dosage: 10 MILLIGRAM, QD
     Dates: start: 201705
  17. TORSEMIDE [Suspect]
     Active Substance: TORSEMIDE
     Indication: Pulmonary hypertension
     Dosage: 20 MILLIGRAM, QD
     Dates: start: 201807
  18. ILOPROST [Concomitant]
     Active Substance: ILOPROST
     Indication: Product used for unknown indication
     Dosage: UNK
  19. ILOPROST [Concomitant]
     Active Substance: ILOPROST
     Dosage: UNK
     Route: 065
  20. ASPIRIN [Concomitant]
     Active Substance: ASPIRIN
     Dosage: UNK

REACTIONS (9)
  - Bradycardia [Unknown]
  - Pulmonary hypertension [Recovering/Resolving]
  - Therapeutic product effect incomplete [Recovered/Resolved]
  - Dyspnoea exertional [Recovering/Resolving]
  - Condition aggravated [Recovered/Resolved]
  - Left-to-right cardiac shunt [Recovered/Resolved]
  - Hypotension [Unknown]
  - Vascular resistance pulmonary decreased [Unknown]
  - Off label use [Unknown]

NARRATIVE: CASE EVENT DATE: 20170101
